FAERS Safety Report 8505845-4 (Version None)
Quarter: 2012Q3

REPORT INFORMATION
  Report Type: 
  Country: None (occurrence: None)
  Receive Date: 20120712
  Receipt Date: 20120703
  Transmission Date: 20120928
  Serious: Yes (Other)
  Sender: FDA-Public Use
  Company Number: US-JNJFOC-20120610668

PATIENT
  Age: 27 Year
  Sex: Male
  Weight: 81.65 kg

DRUGS (1)
  1. BENGAY PM CREAM [Suspect]
     Indication: MUSCLE SPASMS
     Dosage: JUST A LITTLE BIT
     Route: 061
     Dates: end: 20120616

REACTIONS (2)
  - EXPIRED DRUG ADMINISTERED [None]
  - DERMATITIS ATOPIC [None]
